FAERS Safety Report 4984183-0 (Version None)
Quarter: 2006Q2

REPORT INFORMATION
  Report Type: 
  Country: None (occurrence: None)
  Receive Date: 20060420
  Receipt Date: 20060410
  Transmission Date: 20061013
  Serious: Yes (Other)
  Sender: FDA-Public Use
  Company Number: 2006049817

PATIENT
  Age: 52 Year
  Sex: 0

DRUGS (2)
  1. SULPERAZON (SULBACTAM, CEFOPERAZONE) [Suspect]
     Indication: INFECTION PROPHYLAXIS
     Dosage: 3 GRAM (1.5 GRAM, 2 IN 1 D), INTRAVENOUS
     Route: 042
     Dates: start: 20051217, end: 20051201
  2. PHYTONADIONE [Concomitant]

REACTIONS (2)
  - CATHETER RELATED COMPLICATION [None]
  - HAEMORRHAGE [None]
